FAERS Safety Report 6700832-0 (Version None)
Quarter: 2010Q2

REPORT INFORMATION
  Report Type: 
  Country: None (occurrence: None)
  Receive Date: 20100428
  Receipt Date: 20100422
  Transmission Date: 20101027
  Serious: Yes (Other)
  Sender: FDA-Public Use
  Company Number: NO-BAXTER-2010BH010807

PATIENT
  Age: 65 Year
  Sex: Female

DRUGS (11)
  1. GAMMAGARD LIQUID [Suspect]
     Indication: DRUG USE FOR UNKNOWN INDICATION
     Route: 065
     Dates: start: 20100420, end: 20100420
  2. SENDOXAN [Concomitant]
  3. PREDNISOLONE [Concomitant]
  4. CALCIGRAN [Concomitant]
  5. NORTRIPTYLINE HCL [Concomitant]
  6. ZANIDIP [Concomitant]
  7. ALENDRONATE SODIUM [Concomitant]
  8. PARACET [Concomitant]
  9. PINEX FORTE [Concomitant]
  10. TRAMADOL HCL [Concomitant]
  11. RIVOTRIL [Concomitant]

REACTIONS (3)
  - BLOOD PRESSURE INCREASED [None]
  - CHEST DISCOMFORT [None]
  - DYSPNOEA [None]
